FAERS Safety Report 7443329-5 (Version None)
Quarter: 2011Q2

REPORT INFORMATION
  Report Type: 
  Country: None (occurrence: None)
  Receive Date: 20110428
  Receipt Date: 20110414
  Transmission Date: 20111010
  Serious: Yes (Hospitalization)
  Sender: FDA-Public Use
  Company Number: CA-JNJFOC-20110407012

PATIENT
  Sex: Female
  Weight: 68 kg

DRUGS (7)
  1. REMICADE [Suspect]
     Indication: COLITIS ULCERATIVE
     Route: 042
  2. TECTA [Concomitant]
     Route: 048
  3. DOXYCYCLINE [Concomitant]
     Route: 048
  4. PROCTOSEDYL [Concomitant]
     Route: 065
  5. ZINC [Concomitant]
     Route: 048
  6. MESALAMINE [Concomitant]
     Route: 065
  7. CALCIUM [Concomitant]
     Route: 048

REACTIONS (1)
  - COLECTOMY TOTAL [None]
